FAERS Safety Report 15407405 (Version 1)
Quarter: 2018Q3

REPORT INFORMATION
  Report Type: Spontaneous
  Country: US (occurrence: US)
  Receive Date: 20180920
  Receipt Date: 20180920
  Transmission Date: 20181010
  Serious: No
  Sender: FDA-Public Use
  Company Number: US-AMARIN PHARMA, INC.-2017AMR000215

PATIENT
  Age: 72 Year
  Sex: Female
  Weight: 85.81 kg

DRUGS (3)
  1. EYE DROPS (UNSPECIFIED) [Concomitant]
     Indication: GLAUCOMA
  2. FISH OIL [Concomitant]
     Active Substance: FISH OIL
     Indication: PRODUCT USED FOR UNKNOWN INDICATION
     Dates: end: 201707
  3. VASCEPA [Suspect]
     Active Substance: ICOSAPENT ETHYL
     Indication: VITAMIN D DEFICIENCY
     Route: 048
     Dates: start: 20170727, end: 20170728

REACTIONS (3)
  - Hypersensitivity [Recovered/Resolved]
  - Pruritus [Recovered/Resolved]
  - Off label use [Recovered/Resolved]

NARRATIVE: CASE EVENT DATE: 20170727
